FAERS Safety Report 10489603 (Version 2)
Quarter: 2015Q1

REPORT INFORMATION
  Report Type: Spontaneous
  Country: DE (occurrence: None)
  Receive Date: 20140930
  Receipt Date: 20150203
  Transmission Date: 20150720
  Serious: Yes (Hospitalization)
  Sender: FDA-Public Use
  Company Number: 2014DEPDE00606

PATIENT
  Age: 64 Year
  Sex: Male
  Weight: 65 kg

DRUGS (1)
  1. DEPOCYT [Suspect]
     Active Substance: CYTARABINE
     Indication: ACUTE MYELOID LEUKAEMIA
     Dosage: EVENT OCCURED AFTER THIRD ADMINISTRATION
     Route: 037

REACTIONS (10)
  - Chills [None]
  - Back pain [None]
  - Hearing impaired [None]
  - Hypertension [None]
  - Anaphylactoid reaction [None]
  - Nausea [None]
  - Body temperature increased [None]
  - Pain [None]
  - Wrong technique in drug usage process [None]
  - Hypoaesthesia [None]

NARRATIVE: CASE EVENT DATE: 201409
